FAERS Safety Report 6221664-6 (Version None)
Quarter: 2009Q2

REPORT INFORMATION
  Report Type: 
  Country: None (occurrence: None)
  Receive Date: 20090610
  Receipt Date: 20090608
  Transmission Date: 20091009
  Serious: Yes (Death, Hospitalization)
  Sender: FDA-Public Use
  Company Number: PHHY2009ES22305

PATIENT
  Sex: Female

DRUGS (2)
  1. STALEVO 100 [Suspect]
     Dosage: 150 MG, UNK
     Route: 048
  2. STALEVO 100 [Suspect]
     Dosage: 200 MG/ DAY
     Route: 048
     Dates: start: 20090520

REACTIONS (7)
  - COMA [None]
  - DEATH [None]
  - HEART RATE INCREASED [None]
  - MALAISE [None]
  - PNEUMOTHORAX [None]
  - RESPIRATORY FAILURE [None]
  - URINARY TRACT INFECTION [None]
